FAERS Safety Report 9324645 (Version 1)
Quarter: 2013Q2

REPORT INFORMATION
  Report Type: Spontaneous
  Country: IT (occurrence: IT)
  Receive Date: 20130603
  Receipt Date: 20130603
  Transmission Date: 20140414
  Serious: Yes (Hospitalization)
  Sender: FDA-Public Use
  Company Number: IT-TEVA-408159ISR

PATIENT
  Age: 41 Year
  Sex: Female

DRUGS (2)
  1. ALPRAZOLAM [Suspect]
     Indication: INTENTIONAL SELF-INJURY
     Dosage: 5 MILLIGRAM DAILY;
     Route: 048
     Dates: start: 20130125, end: 20130125
  2. PAROXETINA MYLAN GENERICS [Suspect]
     Indication: INTENTIONAL SELF-INJURY
     Dosage: 1120 MILLIGRAM DAILY;
     Route: 048
     Dates: start: 20130125, end: 20130125

REACTIONS (6)
  - Drug abuse [Recovering/Resolving]
  - Intentional self-injury [Recovering/Resolving]
  - Nausea [Recovering/Resolving]
  - Tremor [Recovering/Resolving]
  - Sopor [Recovering/Resolving]
  - Unresponsive to stimuli [Recovering/Resolving]
